FAERS Safety Report 17094653 (Version 1)
Quarter: 2019Q4

REPORT INFORMATION
  Report Type: Spontaneous
  Country: US (occurrence: US)
  Receive Date: 20191130
  Receipt Date: 20191130
  Transmission Date: 20200122
  Serious: Yes (Life-Threatening, Hospitalization, Other)
  Sender: FDA-Public Use
  Company Number: US-DRREDDYS-USA/USA/19/0116678

PATIENT
  Age: 53 Year
  Sex: Female

DRUGS (4)
  1. DOXORUBICIN HYDROCHLORIDE LIPOSOME INJECTION 20 MG/10 ML (2 MG/ML) AND [Suspect]
     Active Substance: DOXORUBICIN HYDROCHLORIDE
     Indication: ADULT T-CELL LYMPHOMA/LEUKAEMIA
     Dosage: EQUIVALENT OF 19.5 MG/D
  2. PREDNISONE. [Concomitant]
     Active Substance: PREDNISONE
     Indication: ADULT T-CELL LYMPHOMA/LEUKAEMIA
     Dosage: PREDNISONE 100 MG ON DAYS 1-5
  3. VINCRISTINE [Concomitant]
     Active Substance: VINCRISTINE
     Indication: ADULT T-CELL LYMPHOMA/LEUKAEMIA
  4. ETOPOSIDE. [Concomitant]
     Active Substance: ETOPOSIDE
     Indication: ADULT T-CELL LYMPHOMA/LEUKAEMIA

REACTIONS (5)
  - Renal impairment [Unknown]
  - Cardiac failure [Recovered/Resolved]
  - Condition aggravated [Recovering/Resolving]
  - Cardiotoxicity [Recovered/Resolved]
  - Stress cardiomyopathy [Recovered/Resolved]
